FAERS Safety Report 11292645 (Version 1)
Quarter: 2015Q3

REPORT INFORMATION
  Report Type: Spontaneous
  Country: US (occurrence: None)
  Receive Date: 20150721
  Receipt Date: 20150721
  Transmission Date: 20151125
  Serious: Yes (Hospitalization)
  Sender: FDA-Public Use
  Company Number: None

PATIENT
  Age: 45 Year
  Sex: Female

DRUGS (1)
  1. IRON SUCROSE [Suspect]
     Active Substance: IRON SUCROSE
     Indication: IRON DEFICIENCY ANAEMIA
     Route: 042
     Dates: start: 20100127, end: 20100127

REACTIONS (10)
  - Diarrhoea [None]
  - Abdominal discomfort [None]
  - Nausea [None]
  - Infusion site extravasation [None]
  - Dizziness [None]
  - Limb discomfort [None]
  - Syncope [None]
  - Hyperhidrosis [None]
  - Abdominal pain [None]
  - Oedema peripheral [None]

NARRATIVE: CASE EVENT DATE: 20100127
